FAERS Safety Report 6579918-X (Version None)
Quarter: 2010Q1

REPORT INFORMATION
  Report Type: 
  Country: None (occurrence: None)
  Receive Date: 20100212
  Receipt Date: 20100204
  Transmission Date: 20100710
  Serious: Yes (Other)
  Sender: FDA-Public Use
  Company Number: PT-JNJFOC-20091106461

PATIENT
  Age: 30 Year
  Sex: Female

DRUGS (19)
  1. REMICADE [Suspect]
     Indication: CROHN'S DISEASE
     Route: 042
     Dates: end: 20091110
  2. REMICADE [Suspect]
     Route: 042
     Dates: end: 20091110
  3. REMICADE [Suspect]
     Route: 042
     Dates: end: 20091110
  4. REMICADE [Suspect]
     Route: 042
     Dates: end: 20091110
  5. REMICADE [Suspect]
     Route: 042
     Dates: end: 20091110
  6. REMICADE [Suspect]
     Indication: SPINAL OSTEOARTHRITIS
     Route: 042
     Dates: end: 20091110
  7. REMICADE [Suspect]
     Route: 042
     Dates: end: 20091110
  8. REMICADE [Suspect]
     Route: 042
     Dates: end: 20091110
  9. REMICADE [Suspect]
     Route: 042
     Dates: end: 20091110
  10. REMICADE [Suspect]
     Route: 042
     Dates: end: 20091110
  11. FLU VACCINE [Concomitant]
     Indication: INFLUENZA IMMUNISATION
  12. FLU VACCINE [Concomitant]
     Indication: PREMEDICATION
  13. H1N1 VACCINE [Concomitant]
     Indication: INFLUENZA IMMUNISATION
  14. H1N1 VACCINE [Concomitant]
     Indication: PREMEDICATION
  15. UNSPECIFIED VACCINES [Concomitant]
     Indication: PREMEDICATION
  16. CLEMASTINE FUMARATE [Concomitant]
     Indication: PREMEDICATION
  17. CLEMASTINE FUMARATE [Concomitant]
  18. HYDROCORTISONE [Concomitant]
     Indication: PREMEDICATION
  19. PNEUMOCOCCAL  VACCINE [Concomitant]

REACTIONS (9)
  - DRUG EXPOSURE BEFORE PREGNANCY [None]
  - DYSPNOEA [None]
  - ERYTHEMA [None]
  - FEELING HOT [None]
  - FLUSHING [None]
  - INFUSION RELATED REACTION [None]
  - LACRIMATION INCREASED [None]
  - PARAESTHESIA [None]
  - TREMOR [None]
